FAERS Safety Report 8444009-X (Version None)
Quarter: 2012Q2

REPORT INFORMATION
  Report Type: 
  Country: None (occurrence: None)
  Receive Date: 20120618
  Receipt Date: 20120612
  Transmission Date: 20120825
  Serious: Yes (Other)
  Sender: FDA-Public Use
  Company Number: PHHY2010JP55498

PATIENT
  Sex: Female
  Weight: 48 kg

DRUGS (3)
  1. ZOMETA [Suspect]
     Indication: METASTASES TO BONE
     Dosage: 4 MG, FOR 5 YEARS
     Route: 041
     Dates: start: 20060822, end: 20100608
  2. PACLITAXEL [Concomitant]
     Indication: BREAST CANCER
     Route: 041
     Dates: start: 20060328
  3. AREDIA [Suspect]
     Indication: METASTASES TO BONE
     Dosage: 90 MG, UNK
     Route: 042
     Dates: start: 20050819, end: 20060721

REACTIONS (31)
  - SWELLING FACE [None]
  - OSTEITIS [None]
  - DYSPHONIA [None]
  - ABSCESS JAW [None]
  - IMPAIRED HEALING [None]
  - WHITE BLOOD CELL COUNT DECREASED [None]
  - HAEMOGLOBIN DECREASED [None]
  - PURULENT DISCHARGE [None]
  - ORAL PAIN [None]
  - HAEMATOCRIT DECREASED [None]
  - TOOTH LOSS [None]
  - PERIODONTAL DISEASE [None]
  - OSTEONECROSIS OF JAW [None]
  - CELLULITIS [None]
  - ORAL DISCOMFORT [None]
  - DRY MOUTH [None]
  - ORAL CANDIDIASIS [None]
  - GINGIVAL SWELLING [None]
  - PRIMARY SEQUESTRUM [None]
  - MIDDLE INSOMNIA [None]
  - SENSORY LOSS [None]
  - DYSPHAGIA [None]
  - BREATH ODOUR [None]
  - TOOTH AVULSION [None]
  - ANXIETY [None]
  - LOOSE TOOTH [None]
  - BLOODY DISCHARGE [None]
  - PLATELET COUNT INCREASED [None]
  - EXPOSED BONE IN JAW [None]
  - WEIGHT DECREASED [None]
  - RED BLOOD CELL COUNT DECREASED [None]
